FAERS Safety Report 17818470 (Version 5)
Quarter: 2020Q3

REPORT INFORMATION
  Report Type: Spontaneous
  Country: JP (occurrence: JP)
  Receive Date: 20200522
  Receipt Date: 20200908
  Transmission Date: 20201102
  Serious: Yes (Life-Threatening, Hospitalization)
  Sender: FDA-Public Use
  Company Number: JP-009507513-2005JPN001166J

PATIENT
  Age: 71 Year
  Sex: Male
  Weight: 75 kg

DRUGS (17)
  1. ALIMTA [Concomitant]
     Active Substance: PEMETREXED DISODIUM
     Indication: NON-SMALL CELL LUNG CANCER
     Dosage: 1000 MILLIGRAM, Q3W
     Route: 051
     Dates: start: 20200219, end: 20200416
  2. MS CONTIN [Concomitant]
     Active Substance: MORPHINE SULFATE
     Dosage: 10 MILLIGRAM, BID, 7:00 AND 19:00
     Route: 048
     Dates: start: 20200218, end: 20200603
  3. CYMBALTA [Concomitant]
     Active Substance: DULOXETINE HYDROCHLORIDE
     Dosage: 30 MILLIGRAM, QD, AFTER BREAKFAST
     Route: 048
     Dates: start: 20200309, end: 20200603
  4. LEXAPRO [Concomitant]
     Active Substance: ESCITALOPRAM OXALATE
     Dosage: 10 MILLIGRAM, QD, AFTER DINNER
     Route: 048
     Dates: start: 20200309, end: 20200603
  5. MEILAX [Concomitant]
     Active Substance: ETHYL LOFLAZEPATE
     Dosage: 1 MILLIGRAM, BID, AFTER BREAKFAST AND DINNER
     Route: 048
     Dates: start: 20200309, end: 20200603
  6. BROTIZOLAM [Concomitant]
     Active Substance: BROTIZOLAM
     Dosage: 0.25 MILLIGRAM, QD, BEFORE SLEEP
     Route: 048
     Dates: start: 20200309, end: 20200603
  7. CARBOPLATIN. [Concomitant]
     Active Substance: CARBOPLATIN
     Indication: NON-SMALL CELL LUNG CANCER
     Dosage: UNK, Q3W
     Route: 051
     Dates: start: 20200219, end: 20200416
  8. MAGMITT [Concomitant]
     Active Substance: MAGNESIUM OXIDE
     Dosage: 330 MILLIGRAM, TID, AFTER EACH MEAL
     Route: 048
     Dates: start: 20200218, end: 20200603
  9. PANVITAN [Concomitant]
     Active Substance: VITAMINS
     Dosage: 1 GRAM, QD, AFTER BREAKFAST
     Route: 048
     Dates: start: 20200218, end: 20200603
  10. LOXOPROFEN NA [Concomitant]
     Active Substance: LOXOPROFEN SODIUM
     Dosage: 60 MILLIGRAM, TID, AFTER BREAKFAST , LUNCH AND BEFORE SLEEP
     Route: 048
     Dates: start: 20200218, end: 20200603
  11. SYMPROIC [Concomitant]
     Active Substance: NALDEMEDINE
     Dosage: 0.2 MILLIGRAM, QD, AFTER BREAKFAST
     Route: 048
     Dates: start: 20200218, end: 20200603
  12. OPSO [Concomitant]
     Active Substance: MORPHINE HYDROCHLORIDE
     Dosage: 5 MILLIGRAM, PRN(WHEN IN PAIN)
     Route: 048
     Dates: start: 20200218, end: 20200603
  13. TRAZODONE HYDROCHLORIDE. [Concomitant]
     Active Substance: TRAZODONE HYDROCHLORIDE
     Dosage: 25 MILLIGRAM, QD, BEFORE SLEEP
     Route: 048
     Dates: start: 20200309, end: 20200603
  14. SULPIRIDE [Concomitant]
     Active Substance: SULPIRIDE
     Dosage: 50 MILLIGRAM, BID, AFTER BREAKFAST AND DINNER
     Route: 048
  15. KEYTRUDA [Suspect]
     Active Substance: PEMBROLIZUMAB
     Indication: NON-SMALL CELL LUNG CANCER
     Dosage: 200 MILLIGRAM, Q3W
     Route: 041
     Dates: start: 20200219, end: 20200416
  16. ULCERLMIN [Concomitant]
     Active Substance: SUCRALFATE
     Dosage: 1 DOSAGE FORM, TID, AFTER EACH MEAL
     Route: 048
  17. TAKECAB [Concomitant]
     Active Substance: VONOPRAZAN FUMARATE
     Dosage: 20 MILLIGRAM, QD, BEFORE SLEEP
     Route: 048

REACTIONS (1)
  - Gastrointestinal mucosal disorder [Recovered/Resolved]

NARRATIVE: CASE EVENT DATE: 20200501
